APPROVED DRUG PRODUCT: RIVASTIGMINE TARTRATE
Active Ingredient: RIVASTIGMINE TARTRATE
Strength: EQ 6MG BASE
Dosage Form/Route: CAPSULE;ORAL
Application: A077130 | Product #004 | TE Code: AB
Applicant: DR REDDYS LABORATORIES INC
Approved: Oct 31, 2007 | RLD: No | RS: Yes | Type: RX